FAERS Safety Report 5004374-2 (Version None)
Quarter: 2006Q2

REPORT INFORMATION
  Report Type: 
  Country: None (occurrence: None)
  Receive Date: 20060517
  Receipt Date: 20051124
  Transmission Date: 20061013
  Serious: Yes (Hospitalization)
  Sender: FDA-Public Use
  Company Number: PHHO2005FR18553

PATIENT
  Age: 69 Year
  Sex: Male
  Weight: 84 kg

DRUGS (3)
  1. NO TREATMENT RECEIVED NOMED [Suspect]
     Indication: RENAL TRANSPLANT
     Dosage: NO TREATMENT
  2. CELLCEPT [Concomitant]
     Indication: RENAL TRANSPLANT
  3. NEORAL [Suspect]
     Indication: RENAL TRANSPLANT

REACTIONS (1)
  - PHLEBITIS [None]
